FAERS Safety Report 6655808-9 (Version None)
Quarter: 2010Q1

REPORT INFORMATION
  Report Type: 
  Country: None (occurrence: None)
  Receive Date: 20100329
  Receipt Date: 20100324
  Transmission Date: 20100710
  Serious: Yes (Life-Threatening)
  Sender: FDA-Public Use
  Company Number: FR-ROCHE-693052

PATIENT
  Age: 73 Year
  Sex: Male

DRUGS (11)
  1. RIVOTRIL [Suspect]
     Indication: DRUG USE FOR UNKNOWN INDICATION
     Route: 048
     Dates: start: 20080701, end: 20080701
  2. BREXIN [Suspect]
     Indication: DRUG USE FOR UNKNOWN INDICATION
     Route: 048
     Dates: start: 20080701, end: 20080701
  3. ARTOTEC [Suspect]
     Indication: DRUG USE FOR UNKNOWN INDICATION
     Route: 065
     Dates: start: 20080801, end: 20080812
  4. ACUPAN [Suspect]
     Indication: DRUG USE FOR UNKNOWN INDICATION
     Route: 065
     Dates: start: 20080801, end: 20080812
  5. MYOLASTAN [Suspect]
     Indication: DRUG USE FOR UNKNOWN INDICATION
     Route: 048
     Dates: start: 20080815, end: 20080905
  6. VITAMIN B1 TAB [Suspect]
     Indication: DRUG USE FOR UNKNOWN INDICATION
     Route: 048
     Dates: start: 20080815, end: 20080925
  7. VITAMIN B6 [Suspect]
     Indication: DRUG USE FOR UNKNOWN INDICATION
     Route: 048
     Dates: start: 20080815, end: 20080925
  8. SOLUPRED [Suspect]
     Indication: DRUG USE FOR UNKNOWN INDICATION
     Route: 048
     Dates: start: 20080815, end: 20080925
  9. MAGNESIUM [Concomitant]
     Dates: start: 20080825
  10. CALCIUM [Concomitant]
     Dates: start: 20080825
  11. VITAMIN C [Concomitant]
     Dates: start: 20080825

REACTIONS (1)
  - TOXIC EPIDERMAL NECROLYSIS [None]
